FAERS Safety Report 8491448-7 (Version None)
Quarter: 2012Q3

REPORT INFORMATION
  Report Type: 
  Country: None (occurrence: None)
  Receive Date: 20120706
  Receipt Date: 20120627
  Transmission Date: 20120928
  Serious: Yes (Hospitalization)
  Sender: FDA-Public Use
  Company Number: US-JNJFOC-20120520534

PATIENT
  Sex: Male
  Weight: 35.1 kg

DRUGS (10)
  1. CALCIUM CARBONATE [Concomitant]
  2. BETA CAROTENE [Concomitant]
  3. AZATHIOPRINE [Concomitant]
  4. MESALAMINE [Concomitant]
     Route: 048
  5. PREDNISONE TAB [Concomitant]
  6. IRON [Concomitant]
  7. PROTONIX [Concomitant]
  8. REMICADE [Suspect]
     Indication: COLITIS ULCERATIVE
     Route: 042
     Dates: start: 20060413
  9. MULTI-VITAMINS [Concomitant]
  10. MIRALAX [Concomitant]

REACTIONS (1)
  - COLONIC STENOSIS [None]
